FAERS Safety Report 9798598 (Version 2)
Quarter: 2014Q1

REPORT INFORMATION
  Report Type: Spontaneous
  Country: IE (occurrence: None)
  Receive Date: 20131231
  Receipt Date: 20140314
  Transmission Date: 20141002
  Serious: Yes (Other)
  Sender: FDA-Public Use
  Company Number: PI-10039

PATIENT
  Sex: Female

DRUGS (1)
  1. CHLORAPREP (2% CHG/70% IPA) WITH FD + C YELLOW# 6 [Suspect]
     Indication: PREOPERATIVE CARE
     Dosage: UNKNOWN, ONCE, TOPICAL
     Route: 061
     Dates: start: 20131201

REACTIONS (5)
  - Incorrect route of drug administration [None]
  - Product physical issue [None]
  - Chemical eye injury [None]
  - Corneal disorder [None]
  - Pain [None]
